FAERS Safety Report 5975707-5 (Version None)
Quarter: 2008Q4

REPORT INFORMATION
  Report Type: 
  Country: None (occurrence: None)
  Receive Date: 20081202
  Receipt Date: 20081127
  Transmission Date: 20090506
  Serious: Yes (Death, Life-Threatening, Hospitalization, Other)
  Sender: FDA-Public Use
  Company Number: PHHY2008JP22568

PATIENT
  Sex: Female
  Weight: 43 kg

DRUGS (8)
  1. ICL670A ICL+DISTAB [Suspect]
     Indication: IRON OVERLOAD
     Dosage: 500 MG, QD
     Route: 048
     Dates: start: 20080805, end: 20080923
  2. BLOPRESS [Concomitant]
     Dosage: 4 MG/DAY
     Route: 048
     Dates: start: 20070808, end: 20080925
  3. FAMOTIDINE [Concomitant]
     Dosage: 20 MG/DAY
     Route: 048
     Dates: start: 20070808, end: 20080925
  4. PREDONINE [Concomitant]
     Dosage: 5 MG/DAY
     Route: 048
     Dates: start: 20080805, end: 20080925
  5. CYANOCOBALAMIN [Concomitant]
     Dosage: 1.5 MG/DAY
     Route: 048
     Dates: start: 20070808, end: 20080925
  6. ADONA [Concomitant]
     Indication: MYELODYSPLASTIC SYNDROME
     Dosage: UNK
     Dates: start: 20080516, end: 20080925
  7. GOODMIN [Concomitant]
     Dosage: 0.25 MG/DAY
     Route: 048
     Dates: start: 20070808, end: 20080925
  8. ETIZOLAM [Concomitant]
     Dosage: 0.25 MG/DAY
     Route: 048
     Dates: start: 20080729, end: 20080925

REACTIONS (6)
  - BLOOD LACTATE DEHYDROGENASE INCREASED [None]
  - COMPUTERISED TOMOGRAM ABNORMAL [None]
  - MALAISE [None]
  - PERICARDIAL HAEMORRHAGE [None]
  - THROMBOCYTOPENIA [None]
  - WHITE BLOOD CELL COUNT INCREASED [None]
